FAERS Safety Report 19004979 (Version 3)
Quarter: 2021Q2

REPORT INFORMATION
  Report Type: Spontaneous
  Country: IT (occurrence: IT)
  Receive Date: 20210312
  Receipt Date: 20210525
  Transmission Date: 20210717
  Serious: Yes (Other)
  Sender: FDA-Public Use
  Company Number: IT-009507513-2103ITA003098

PATIENT
  Age: 64 Year
  Sex: Male

DRUGS (6)
  1. REMDESIVIR. [Suspect]
     Active Substance: REMDESIVIR
     Dosage: 100 MILLIGRAM, Q24H, RECEIVED ON 57?DAY
     Route: 065
  2. ACICLOVIR [Concomitant]
     Active Substance: ACYCLOVIR
     Dosage: UNK
  3. LETERMOVIR [Suspect]
     Active Substance: LETERMOVIR
     Indication: PROPHYLAXIS
     Dosage: UNK
  4. ISAVUCONAZONIUM [Suspect]
     Active Substance: ISAVUCONAZONIUM
     Dosage: UNK
  5. ISAVUCONAZONIUM [Suspect]
     Active Substance: ISAVUCONAZONIUM
     Dosage: UNK
  6. ATOVAQUONE. [Concomitant]
     Active Substance: ATOVAQUONE
     Dosage: UNK

REACTIONS (1)
  - Drug-induced liver injury [Unknown]
